FAERS Safety Report 12754620 (Version 1)
Quarter: 2016Q3

REPORT INFORMATION
  Report Type: Spontaneous
  Country: US (occurrence: US)
  Receive Date: 20160915
  Receipt Date: 20160915
  Transmission Date: 20161109
  Serious: Yes (Other)
  Sender: FDA-Public Use
  Company Number: US-ASTELLAS-2016US023714

PATIENT
  Age: 85 Year
  Sex: Male

DRUGS (1)
  1. XTANDI [Suspect]
     Active Substance: ENZALUTAMIDE
     Indication: PROSTATE CANCER
     Route: 048
     Dates: start: 20160324, end: 201607

REACTIONS (10)
  - Gait disturbance [Unknown]
  - Fatigue [Unknown]
  - Confusional state [Recovering/Resolving]
  - Dysstasia [Unknown]
  - Hypersomnia [Unknown]
  - Posterior reversible encephalopathy syndrome [Recovering/Resolving]
  - Faeces soft [Recovered/Resolved]
  - Muscular weakness [Recovering/Resolving]
  - Weight decreased [Not Recovered/Not Resolved]
  - Frequent bowel movements [Recovered/Resolved]

NARRATIVE: CASE EVENT DATE: 201607
